FAERS Safety Report 12521892 (Version 1)
Quarter: 2016Q3

REPORT INFORMATION
  Report Type: Spontaneous
  Country: US (occurrence: US)
  Receive Date: 20160701
  Receipt Date: 20160701
  Transmission Date: 20161109
  Serious: Yes (Hospitalization)
  Sender: FDA-Public Use
  Company Number: US-MALLINCKRODT-T201602133

PATIENT
  Age: 49 Year
  Sex: Female

DRUGS (11)
  1. PRILOCAINE [Concomitant]
     Active Substance: PRILOCAINE
  2. POLYETHYLENE GLYCOL [Concomitant]
     Active Substance: POLYETHYLENE GLYCOLS
  3. GABLOFEN [Suspect]
     Active Substance: BACLOFEN
     Indication: MUSCLE SPASTICITY
     Dosage: 115MCG/DAY
     Route: 037
     Dates: start: 201305, end: 201604
  4. LEXAPRO [Concomitant]
     Active Substance: ESCITALOPRAM OXALATE
  5. ADDERALL [Concomitant]
     Active Substance: AMPHETAMINE ASPARTATE\AMPHETAMINE SULFATE\DEXTROAMPHETAMINE SACCHARATE\DEXTROAMPHETAMINE SULFATE
  6. ALPRAZOLAM. [Concomitant]
     Active Substance: ALPRAZOLAM
  7. BUPROPION. [Concomitant]
     Active Substance: BUPROPION
  8. LIDOCAINE. [Concomitant]
     Active Substance: LIDOCAINE
  9. GABLOFEN [Suspect]
     Active Substance: BACLOFEN
     Dosage: 124 MCG/DAY
     Route: 037
     Dates: start: 201604, end: 201606
  10. GABLOFEN [Suspect]
     Active Substance: BACLOFEN
     Dosage: 60 MCG/DAY
     Route: 037
     Dates: start: 201606
  11. SENNOSIDES A+B [Concomitant]
     Active Substance: SENNOSIDES A AND B

REACTIONS (4)
  - Cerebrospinal fluid leakage [Unknown]
  - Meningocele [Unknown]
  - Device issue [Unknown]
  - Musculoskeletal stiffness [Unknown]

NARRATIVE: CASE EVENT DATE: 20160517
